FAERS Safety Report 9690833 (Version 2)
Quarter: 2013Q4

REPORT INFORMATION
  Report Type: Spontaneous
  Country: IT (occurrence: IT)
  Receive Date: 20131115
  Receipt Date: 20131120
  Transmission Date: 20140711
  Serious: Yes (Hospitalization)
  Sender: FDA-Public Use
  Company Number: IT-ASTRAZENECA-2013SE82898

PATIENT
  Age: 14911 Day
  Sex: Female

DRUGS (7)
  1. SEROQUEL [Suspect]
     Indication: PSYCHOPATHIC PERSONALITY
     Route: 048
     Dates: start: 20130101, end: 20131030
  2. SEROQUEL [Suspect]
     Indication: PSYCHOPATHIC PERSONALITY
     Route: 048
  3. DEPAKIN [Suspect]
     Indication: PSYCHOPATHIC PERSONALITY
     Route: 048
     Dates: start: 20130101, end: 20131030
  4. DEPAKIN [Suspect]
     Indication: PSYCHOPATHIC PERSONALITY
     Route: 048
  5. PROZIN [Suspect]
     Indication: PSYCHOPATHIC PERSONALITY
     Route: 048
     Dates: start: 20130101, end: 20131030
  6. PROZIN [Suspect]
     Indication: PSYCHOPATHIC PERSONALITY
     Route: 048
  7. MODITEN [Suspect]
     Indication: PSYCHOPATHIC PERSONALITY
     Dosage: 25 MG/1ML
     Route: 030
     Dates: start: 20130101, end: 20131030

REACTIONS (5)
  - Accidental overdose [Unknown]
  - Mydriasis [Recovered/Resolved]
  - Psychomotor retardation [Recovered/Resolved]
  - Sopor [Recovered/Resolved]
  - Toxicity to various agents [Recovered/Resolved]
